FAERS Safety Report 7409497-6 (Version None)
Quarter: 2011Q2

REPORT INFORMATION
  Report Type: 
  Country: None (occurrence: None)
  Receive Date: 20110407
  Receipt Date: 20110407
  Transmission Date: 20111010
  Serious: Yes (Hospitalization)
  Sender: FDA-Public Use
  Company Number: None

PATIENT
  Age: 91 Year
  Sex: Male

DRUGS (2)
  1. TERAZOSIN HCL [Suspect]
     Indication: BENIGN PROSTATIC HYPERPLASIA
     Dosage: 10 MG AT BEDTIME PO
     Route: 048
     Dates: start: 20070319, end: 20110322
  2. FUROSEMIDE [Suspect]
     Indication: HYPERTENSION
     Dosage: 40 MG OTHER PO
     Route: 048
     Dates: start: 20100524

REACTIONS (7)
  - UNRESPONSIVE TO STIMULI [None]
  - DROOLING [None]
  - HEADACHE [None]
  - SYNCOPE [None]
  - URINARY INCONTINENCE [None]
  - BACK PAIN [None]
  - BLOOD PRESSURE SYSTOLIC DECREASED [None]
